FAERS Safety Report 5899253-2 (Version None)
Quarter: 2008Q3

REPORT INFORMATION
  Report Type: 
  Country: None (occurrence: None)
  Receive Date: 20080902
  Receipt Date: 20080522
  Transmission Date: 20090109
  Serious: Yes (Hospitalization)
  Sender: FDA-Public Use
  Company Number: KADN20080071

PATIENT
  Age: 49 Year
  Sex: Male

DRUGS (4)
  1. KADIAN [Suspect]
     Indication: BACK PAIN
     Dosage: 20 MG, 1 CAP BID, PER ORAL
     Route: 048
     Dates: start: 20080514, end: 20080516
  2. CELEBREX [Concomitant]
  3. ELAVIL [Concomitant]
  4. LYRICA [Concomitant]

REACTIONS (3)
  - DIZZINESS [None]
  - HYPOTENSION [None]
  - OVERDOSE [None]
